FAERS Safety Report 7604893-6 (Version None)
Quarter: 2011Q3

REPORT INFORMATION
  Report Type: 
  Country: None (occurrence: None)
  Receive Date: 20110712
  Receipt Date: 20110629
  Transmission Date: 20111222
  Serious: Yes (Death)
  Sender: FDA-Public Use
  Company Number: AU-MYLANLABS-2011S1013777

PATIENT
  Age: 34 Year

DRUGS (5)
  1. ACETAMINOPHEN [Suspect]
     Route: 065
  2. QUETIAPINE [Suspect]
     Route: 065
  3. TRAMADOL HCL [Suspect]
     Route: 065
  4. METHADONE HCL [Suspect]
     Route: 065
  5. CHLORPROMAZINE HCL [Suspect]
     Route: 065

REACTIONS (2)
  - ARRHYTHMIA [None]
  - TOXICITY TO VARIOUS AGENTS [None]
